FAERS Safety Report 10050593 (Version 1)
Quarter: 2014Q2

REPORT INFORMATION
  Report Type: Spontaneous
  Country: US (occurrence: US)
  Receive Date: 20140401
  Receipt Date: 20140401
  Transmission Date: 20141212
  Serious: No
  Sender: FDA-Public Use
  Company Number: US-ASTRAZENECA-2013SE57322

PATIENT
  Age: 87 Year
  Sex: Female
  Weight: 59 kg

DRUGS (3)
  1. NEXIUM [Suspect]
     Indication: GASTROOESOPHAGEAL REFLUX DISEASE
     Dosage: DAILY
     Route: 048
     Dates: start: 20130725
  2. ZOFRAN [Concomitant]
     Indication: NAUSEA
     Dosage: UNKNOWN PRN
     Route: 048
     Dates: start: 20130710
  3. PREVACID [Concomitant]

REACTIONS (2)
  - Gastric disorder [Unknown]
  - Nausea [Not Recovered/Not Resolved]
